FAERS Safety Report 4601865-0 (Version None)
Quarter: 2005Q1

REPORT INFORMATION
  Report Type: 
  Country: None (occurrence: None)
  Receive Date: 20050131
  Receipt Date: 20041124
  Transmission Date: 20050727
  Serious: No
  Sender: FDA-Public Use
  Company Number: 200419119US

PATIENT
  Sex: Female

DRUGS (1)
  1. KETEK [Suspect]
     Dosage: 800 MG QD
     Dates: start: 20041123, end: 20041123

REACTIONS (5)
  - CHILLS [None]
  - ERYTHEMA [None]
  - MUSCLE SPASMS [None]
  - MUSCULAR WEAKNESS [None]
  - NAUSEA [None]
